FAERS Safety Report 8055204-6 (Version None)
Quarter: 2012Q1

REPORT INFORMATION
  Report Type: 
  Country: None (occurrence: None)
  Receive Date: 20120119
  Receipt Date: 20120110
  Transmission Date: 20120608
  Serious: Yes (Hospitalization)
  Sender: FDA-Public Use
  Company Number: FR-JNJFOC-20100608174

PATIENT
  Sex: Male
  Weight: 33.2 kg

DRUGS (4)
  1. ESOMEPRAZOLE SODIUM [Concomitant]
  2. HYDROCORTISONE [Concomitant]
  3. MERCAPTOPURINE [Concomitant]
  4. INFLIXIMAB, RECOMBINANT [Suspect]
     Indication: CROHN'S DISEASE
     Route: 042
     Dates: start: 20090729, end: 20100708

REACTIONS (3)
  - CROHN'S DISEASE [None]
  - GASTROENTERITIS ROTAVIRUS [None]
  - DRUG EFFECT DECREASED [None]
